FAERS Safety Report 9490353 (Version 1)
Quarter: 2013Q3

REPORT INFORMATION
  Report Type: Spontaneous
  Country: US (occurrence: US)
  Receive Date: 20130830
  Receipt Date: 20130830
  Transmission Date: 20140515
  Serious: No
  Sender: FDA-Public Use
  Company Number: US-009507513-1308USA011204

PATIENT
  Age: 37 Year
  Sex: Female

DRUGS (1)
  1. NEXPLANON [Suspect]
     Indication: CONTRACEPTION
     Dosage: 68 MG/3 YEAR IMPLANT
     Route: 059
     Dates: start: 20130731, end: 20130821

REACTIONS (4)
  - Implant site swelling [Unknown]
  - Implant site pain [Unknown]
  - Implant site vesicles [Unknown]
  - Device difficult to use [Recovered/Resolved]
